FAERS Safety Report 20208373 (Version 1)
Quarter: 2021Q4

REPORT INFORMATION
  Report Type: Report from Study
  Country: US (occurrence: US)
  Receive Date: 20211220
  Receipt Date: 20211220
  Transmission Date: 20220303
  Serious: No
  Sender: FDA-Public Use
  Company Number: US-Ipsen Biopharmaceuticals, Inc.-2021-31679

PATIENT
  Sex: Male

DRUGS (1)
  1. SOMATULINE DEPOT [Suspect]
     Active Substance: LANREOTIDE ACETATE
     Indication: Acromegaly
     Dosage: 90 MG EVERY 28 DAYS
     Route: 058
     Dates: start: 202012

REACTIONS (4)
  - Hypertonic bladder [Recovering/Resolving]
  - Glucose tolerance impaired [Recovering/Resolving]
  - Blood pressure increased [Recovering/Resolving]
  - Alopecia [Recovering/Resolving]
